FAERS Safety Report 23853683 (Version 1)
Quarter: 2024Q2

REPORT INFORMATION
  Report Type: Spontaneous
  Country: US (occurrence: None)
  Receive Date: 20240513
  Receipt Date: 20240513
  Transmission Date: 20240716
  Serious: Yes (Hospitalization)
  Sender: FDA-Public Use
  Company Number: None

PATIENT
  Age: 38 Year
  Sex: Male
  Weight: 113.85 kg

DRUGS (1)
  1. BLEOMYCIN [Suspect]
     Active Substance: BLEOMYCIN SULFATE
     Indication: Skin papilloma
     Route: 023
     Dates: end: 20240415

REACTIONS (2)
  - Injection site ischaemia [None]
  - Microvascular coronary artery disease [None]

NARRATIVE: CASE EVENT DATE: 20240415
